FAERS Safety Report 7403801-0 (Version None)
Quarter: 2011Q2

REPORT INFORMATION
  Report Type: 
  Country: None (occurrence: None)
  Receive Date: 20110408
  Receipt Date: 20110331
  Transmission Date: 20111010
  Serious: Yes (Death)
  Sender: FDA-Public Use
  Company Number: US-BAXTER-2011BH008975

PATIENT

DRUGS (3)
  1. GRANULOCYTE COLONY STIMULATING FACTOR [Suspect]
     Indication: PROPHYLAXIS
     Route: 065
  2. MESNA [Concomitant]
     Indication: PROPHYLAXIS
     Route: 042
  3. CYCLOPHOSPHAMIDE [Suspect]
     Indication: SCLERODERMA
     Route: 065

REACTIONS (1)
  - PNEUMONIA [None]
